FAERS Safety Report 22088090 (Version 1)
Quarter: 2023Q1

REPORT INFORMATION
  Report Type: Spontaneous
  Country: US (occurrence: US)
  Receive Date: 20230313
  Receipt Date: 20230313
  Transmission Date: 20230417
  Serious: No
  Sender: FDA-Public Use
  Company Number: US-BRISTOL-MYERS SQUIBB COMPANY-2023-036153

PATIENT
  Sex: Male

DRUGS (2)
  1. ONUREG [Suspect]
     Active Substance: AZACITIDINE
     Indication: Leukaemia
     Dosage: DOSE : 300;     FREQ : 14 DAYS ON 14 DAYS OFF
     Route: 048
     Dates: start: 202112
  2. ONUREG [Suspect]
     Active Substance: AZACITIDINE
     Dosage: DOSE : 200;     FREQ : 14 DAYS ON 14 DAYS OFF
     Route: 048

REACTIONS (2)
  - Gait disturbance [Unknown]
  - Balance disorder [Unknown]

NARRATIVE: CASE EVENT DATE: 20210101
